FAERS Safety Report 5409797-5 (Version None)
Quarter: 2007Q3

REPORT INFORMATION
  Report Type: 
  Country: None (occurrence: None)
  Receive Date: 20070809
  Receipt Date: 20070731
  Transmission Date: 20080115
  Serious: Yes (Other)
  Sender: FDA-Public Use
  Company Number: US-ROCHE-509601

PATIENT
  Age: 57 Year
  Sex: Female

DRUGS (2)
  1. BONIVA [Suspect]
     Indication: OSTEOPENIA
     Route: 048
     Dates: start: 20050101, end: 20070603
  2. ALLEGRA D 24 HOUR [Concomitant]

REACTIONS (2)
  - PHARYNGEAL OEDEMA [None]
  - TOOTH ABSCESS [None]
